FAERS Safety Report 13833258 (Version 1)
Quarter: 2017Q3

REPORT INFORMATION
  Report Type: Spontaneous
  Country: US (occurrence: US)
  Receive Date: 20170803
  Receipt Date: 20170803
  Transmission Date: 20171127
  Serious: No
  Sender: FDA-Public Use
  Company Number: None

PATIENT
  Sex: Female

DRUGS (1)
  1. INLYTA [Suspect]
     Active Substance: AXITINIB
     Indication: RENAL CANCER
     Dosage: 5MG TWICE A DAY BY MOUTH
     Route: 048
     Dates: start: 20170629, end: 20170708

REACTIONS (4)
  - Decreased appetite [None]
  - Weight decreased [None]
  - Stomatitis [None]
  - Throat lesion [None]
